FAERS Safety Report 8143259-X (Version None)
Quarter: 2012Q1

REPORT INFORMATION
  Report Type: 
  Country: None (occurrence: None)
  Receive Date: 20120217
  Receipt Date: 20120214
  Transmission Date: 20120608
  Serious: Yes (Death)
  Sender: FDA-Public Use
  Company Number: MY-PFIZER INC-2012038955

PATIENT
  Age: 54 Year
  Sex: Female

DRUGS (7)
  1. ARMODAFINIL [Suspect]
     Indication: SEPSIS
     Dosage: 200 MG, 1X/DAY
     Route: 042
  2. PANTOPRAZOLE [Concomitant]
     Dosage: UNK
  3. CEFOPERAZONE W/SULBACTAM [Concomitant]
  4. CALCIUM CARBONATE [Concomitant]
  5. VITAMIN K TAB [Concomitant]
  6. MEROPENEM [Concomitant]
  7. RANITIDINE [Concomitant]

REACTIONS (1)
  - HEPATITIS [None]
